FAERS Safety Report 11929376 (Version 3)
Quarter: 2019Q3

REPORT INFORMATION
  Report Type: Spontaneous
  Country: PL (occurrence: PL)
  Receive Date: 20160120
  Receipt Date: 20190801
  Transmission Date: 20191004
  Serious: Yes (Death, Hospitalization, Other)
  Sender: FDA-Public Use
  Company Number: PL-ACCORD-037075

PATIENT
  Age: 58 Year
  Sex: Female

DRUGS (6)
  1. PREDNISONE. [Suspect]
     Active Substance: PREDNISONE
     Indication: LUNG TRANSPLANT
  2. METHYLPREDNISOLONE. [Suspect]
     Active Substance: METHYLPREDNISOLONE
     Indication: LUNG TRANSPLANT
  3. MYCOPHENOLIC ACID. [Suspect]
     Active Substance: MYCOPHENOLIC ACID
     Indication: LUNG TRANSPLANT
  4. PANTOPRAZOLE [Suspect]
     Active Substance: PANTOPRAZOLE
     Indication: PRODUCT USED FOR UNKNOWN INDICATION
  5. CICLOSPORIN [Suspect]
     Active Substance: CYCLOSPORINE
     Indication: LUNG TRANSPLANT
  6. TACROLIMUS. [Suspect]
     Active Substance: TACROLIMUS
     Indication: LUNG TRANSPLANT

REACTIONS (25)
  - Moraxella infection [Unknown]
  - Hypogammaglobulinaemia [Unknown]
  - Pulmonary embolism [Unknown]
  - Escherichia sepsis [Fatal]
  - Acinetobacter infection [Unknown]
  - Sepsis [Fatal]
  - Ear infection [Unknown]
  - Diabetes mellitus [Fatal]
  - Klebsiella infection [Unknown]
  - Corynebacterium infection [Unknown]
  - Cytomegalovirus infection [Not Recovered/Not Resolved]
  - Proteus infection [Unknown]
  - Hypoproteinaemia [Unknown]
  - Electrolyte imbalance [Unknown]
  - Leukopenia [Fatal]
  - Escherichia urinary tract infection [Unknown]
  - Pseudomonas infection [Recovered/Resolved]
  - Candida infection [Unknown]
  - Aspergillus infection [Unknown]
  - Depressive symptom [Unknown]
  - Renal failure [Not Recovered/Not Resolved]
  - Transplant rejection [Fatal]
  - Polyp [Unknown]
  - Anxiety disorder [Unknown]
  - Bronchitis [Unknown]
